FAERS Safety Report 20911742 (Version 1)
Quarter: 2022Q2

REPORT INFORMATION
  Report Type: Spontaneous
  Country: US (occurrence: None)
  Receive Date: 20220603
  Receipt Date: 20220603
  Transmission Date: 20220721
  Serious: Yes (Hospitalization)
  Sender: FDA-Public Use
  Company Number: None

PATIENT
  Age: 56 Year
  Sex: Female

DRUGS (1)
  1. ICATIBANT ACETATE [Suspect]
     Active Substance: ICATIBANT ACETATE
     Indication: Complement deficiency disease
     Dosage: 30 MG PRN SC
     Route: 058
     Dates: start: 20190816

REACTIONS (3)
  - Seizure [None]
  - Swelling face [None]
  - Pharyngeal swelling [None]

NARRATIVE: CASE EVENT DATE: 20220501
